FAERS Safety Report 21055981 (Version 4)
Quarter: 2022Q3

REPORT INFORMATION
  Report Type: Report from Study
  Country: BE (occurrence: BE)
  Receive Date: 20220708
  Receipt Date: 20220914
  Transmission Date: 20221027
  Serious: Yes (Other)
  Sender: FDA-Public Use
  Company Number: BE-BRISTOL-MYERS SQUIBB COMPANY-2022-038757

PATIENT
  Age: 64 Year
  Sex: Male

DRUGS (2)
  1. OPDIVO [Suspect]
     Active Substance: NIVOLUMAB
     Indication: Malignant melanoma
     Route: 042
     Dates: start: 20220506
  2. YERVOY [Suspect]
     Active Substance: IPILIMUMAB
     Indication: Malignant melanoma
     Route: 042
     Dates: start: 20220506

REACTIONS (15)
  - Muscle spasms [Unknown]
  - Pyrexia [Not Recovered/Not Resolved]
  - Hyperthyroidism [Not Recovered/Not Resolved]
  - C-reactive protein increased [Unknown]
  - Autoimmune hepatitis [Unknown]
  - Dermatitis acneiform [Unknown]
  - Pruritus [Unknown]
  - Diarrhoea [Recovering/Resolving]
  - Gastrointestinal disorder [Unknown]
  - Acne [Unknown]
  - Sunburn [Unknown]
  - Rash macular [Unknown]
  - Fatigue [Unknown]
  - Liver function test abnormal [Unknown]
  - Rash [Unknown]

NARRATIVE: CASE EVENT DATE: 20220510
